FAERS Safety Report 16809139 (Version 1)
Quarter: 2019Q3

REPORT INFORMATION
  Report Type: Spontaneous
  Country: US (occurrence: US)
  Receive Date: 20190916
  Receipt Date: 20190916
  Transmission Date: 20191005
  Serious: No
  Sender: FDA-Public Use
  Company Number: US-CURIUM-201900430

PATIENT

DRUGS (2)
  1. ULTRA-TECHNEKOW [Suspect]
     Active Substance: TECHNETIUM TC-99M
     Indication: RENAL SCAN
     Route: 065
     Dates: start: 20190723, end: 20190723
  2. TECHNESCAN MAG3 [Suspect]
     Active Substance: TECHNETIUM TC-99M TIATIDE
     Indication: RENAL SCAN
     Route: 065
     Dates: start: 20190723, end: 20190723

REACTIONS (1)
  - Renal scan abnormal [Recovered/Resolved]

NARRATIVE: CASE EVENT DATE: 20190723
